FAERS Safety Report 23074704 (Version 1)
Quarter: 2023Q4

REPORT INFORMATION
  Report Type: Spontaneous
  Country: US (occurrence: US)
  Receive Date: 20231017
  Receipt Date: 20231017
  Transmission Date: 20240110
  Serious: No
  Sender: FDA-Public Use
  Company Number: US-009507513-2310USA003152

PATIENT
  Age: 67 Year
  Sex: Male

DRUGS (4)
  1. CUBICIN [Suspect]
     Active Substance: DAPTOMYCIN
     Indication: Pneumonia staphylococcal
     Dosage: UNK
  2. VANCOMYCIN [Concomitant]
     Active Substance: VANCOMYCIN
     Indication: Pneumonia staphylococcal
     Dosage: UNK
  3. PIPERACILLIN AND TAZOBACTAM [Concomitant]
     Active Substance: PIPERACILLIN SODIUM\TAZOBACTAM SODIUM
     Indication: Pneumonia staphylococcal
     Dosage: UNK
  4. CEFTAROLINE [Concomitant]
     Active Substance: CEFTAROLINE
     Indication: Pneumonia staphylococcal

REACTIONS (1)
  - Product use in unapproved indication [Unknown]
